FAERS Safety Report 17566574 (Version 1)
Quarter: 2020Q1

REPORT INFORMATION
  Report Type: Spontaneous
  Country: IT (occurrence: IT)
  Receive Date: 20200320
  Receipt Date: 20200320
  Transmission Date: 20200409
  Serious: Yes (Other)
  Sender: FDA-Public Use
  Company Number: IT-PFIZER INC-2020119797

PATIENT
  Age: 21 Year
  Sex: Female

DRUGS (1)
  1. XANAX [Suspect]
     Active Substance: ALPRAZOLAM
     Indication: ANGER
     Dosage: 10 ML, UNK
     Route: 048
     Dates: start: 20200229, end: 20200229

REACTIONS (3)
  - Sopor [Recovering/Resolving]
  - Intentional overdose [Recovering/Resolving]
  - Alcohol interaction [Recovering/Resolving]

NARRATIVE: CASE EVENT DATE: 20200229
